FAERS Safety Report 7773834-3 (Version None)
Quarter: 2011Q3

REPORT INFORMATION
  Report Type: 
  Country: None (occurrence: None)
  Receive Date: 20110923
  Receipt Date: 20110914
  Transmission Date: 20111222
  Serious: Yes (Hospitalization)
  Sender: FDA-Public Use
  Company Number: ES-JNJFOC-20100206821

PATIENT
  Age: 74 Year
  Sex: Female
  Weight: 85 kg

DRUGS (13)
  1. ALPRAZOLAM [Concomitant]
     Route: 048
     Dates: start: 20090219, end: 20090630
  2. TRAMADOL HCL [Concomitant]
     Route: 065
     Dates: start: 20090630
  3. SELECTIVE SEROTONIN REUPTAKE INHIBITOR [Concomitant]
     Route: 065
     Dates: start: 20090219
  4. AMLODIPINE [Concomitant]
     Route: 065
     Dates: start: 20090219
  5. ALLOPURINOL [Concomitant]
     Route: 065
  6. VELCADE [Concomitant]
     Indication: MULTIPLE MYELOMA
     Route: 042
     Dates: start: 20090126, end: 20090512
  7. ZOLEDRONIC ACID [Concomitant]
     Route: 065
  8. PREGABALIN [Concomitant]
     Route: 065
  9. OMEPRAZOLE [Concomitant]
     Route: 048
  10. SIMVASTATIN [Concomitant]
     Route: 048
  11. DURAGESIC-100 [Suspect]
     Indication: PAIN
     Route: 065
  12. EPREX [Suspect]
     Indication: ANAEMIA
     Route: 065
  13. CALCIUM CARBONATE [Concomitant]
     Route: 048

REACTIONS (1)
  - TUMOUR PAIN [None]
